FAERS Safety Report 7260542-0 (Version None)
Quarter: 2011Q1

REPORT INFORMATION
  Report Type: 
  Country: None (occurrence: None)
  Receive Date: 20110130
  Receipt Date: 20101231
  Transmission Date: 20110831
  Serious: No
  Sender: FDA-Public Use
  Company Number: US-ABBOTT-11P-163-0695367-00

PATIENT
  Sex: Male
  Weight: 93.07 kg

DRUGS (8)
  1. PRILOSEC [Concomitant]
     Indication: GASTROOESOPHAGEAL REFLUX DISEASE
  2. ZINC SULFATE [Concomitant]
     Indication: MINERAL SUPPLEMENTATION
  3. MULTIPLE VITAMINS [Concomitant]
     Indication: VITAMIN SUPPLEMENTATION
  4. DONEPEZIL HCL [Concomitant]
     Indication: MEMORY IMPAIRMENT
  5. COUMADIN [Concomitant]
     Indication: PULMONARY EMBOLISM
     Dates: start: 20040101
  6. HUMIRA [Suspect]
     Indication: RHEUMATOID ARTHRITIS
     Dates: start: 20090101
  7. VITAMIN D [Concomitant]
     Indication: VITAMIN SUPPLEMENTATION
  8. LORATADINE [Concomitant]
     Indication: HYPERSENSITIVITY

REACTIONS (1)
  - NAIL DISCOLOURATION [None]
